FAERS Safety Report 10137252 (Version 1)
Quarter: 2014Q2

REPORT INFORMATION
  Report Type: Report from Study
  Country: US (occurrence: US)
  Receive Date: 20140429
  Receipt Date: 20140429
  Transmission Date: 20141212
  Serious: No
  Sender: FDA-Public Use
  Company Number: US-ABBVIE-14P-163-1211037-00

PATIENT
  Age: 59 Year
  Sex: Male
  Weight: 91.71 kg

DRUGS (9)
  1. ANDROGEL [Suspect]
     Indication: BLOOD TESTOSTERONE DECREASED
     Dosage: 2 PUMPS
     Route: 061
     Dates: start: 201208, end: 201301
  2. ANDROGEL [Suspect]
     Dosage: 4 PUMPS
     Route: 061
     Dates: start: 201301
  3. GLIMEPIRIDE [Concomitant]
     Indication: DIABETES MELLITUS
  4. ASPIRIN [Concomitant]
     Indication: ISCHAEMIC HEART DISEASE PROPHYLAXIS
  5. ATENOLOL [Concomitant]
     Indication: HYPERTENSION
  6. RAPAFLO [Concomitant]
     Indication: BENIGN PROSTATIC HYPERPLASIA
  7. SINGULAIR [Concomitant]
     Indication: SEASONAL ALLERGY
  8. JANUMET [Concomitant]
     Indication: DIABETES MELLITUS
  9. CIALIS [Concomitant]
     Indication: ERECTILE DYSFUNCTION

REACTIONS (1)
  - Blood testosterone decreased [Not Recovered/Not Resolved]
